FAERS Safety Report 7657124-5 (Version None)
Quarter: 2011Q3

REPORT INFORMATION
  Report Type: 
  Country: None (occurrence: None)
  Receive Date: 20110804
  Receipt Date: 20110309
  Transmission Date: 20111222
  Serious: No
  Sender: FDA-Public Use
  Company Number: US-GLAXOSMITHKLINE-A0917373A

PATIENT
  Age: 78 Year
  Sex: Female

DRUGS (2)
  1. ADVAIR DISKUS 100/50 [Suspect]
     Indication: LOWER RESPIRATORY TRACT INFECTION
     Dosage: 2PUFF SINGLE DOSE
     Route: 055
     Dates: start: 20110307, end: 20110307
  2. LEVAQUIN [Concomitant]

REACTIONS (5)
  - ILL-DEFINED DISORDER [None]
  - DYSPNOEA [None]
  - DIZZINESS [None]
  - DYSPHAGIA [None]
  - THROAT TIGHTNESS [None]
